FAERS Safety Report 24293664 (Version 1)
Quarter: 2024Q3

REPORT INFORMATION
  Report Type: Spontaneous
  Country: US (occurrence: None)
  Receive Date: 20240906
  Receipt Date: 20240906
  Transmission Date: 20241016
  Serious: No
  Sender: DOMPE FARMACEUTICI
  Company Number: US-FARMAPROD-202308-202402-0484

PATIENT
  Age: 77 Year
  Sex: Female

DRUGS (9)
  1. OXERVATE [Suspect]
     Active Substance: CENEGERMIN-BKBJ
     Indication: Neurotrophic keratopathy
     Route: 047
     Dates: start: 20240201
  2. METHOCARBAMOL [Concomitant]
     Active Substance: METHOCARBAMOL
  3. OFLOXACIN [Concomitant]
     Active Substance: OFLOXACIN
  4. LEVOTHYROXINE SODIUM [Concomitant]
     Active Substance: LEVOTHYROXINE SODIUM
  5. CARVEDILOL [Concomitant]
     Active Substance: CARVEDILOL
  6. FUROSEMIDE [Concomitant]
     Active Substance: FUROSEMIDE
  7. ROSUVASTATIN CALCIUM [Concomitant]
     Active Substance: ROSUVASTATIN CALCIUM
  8. POTASSIUM [Concomitant]
     Active Substance: POTASSIUM
     Dosage: 595 (99) MG
  9. METFORMIN [Concomitant]
     Active Substance: METFORMIN HYDROCHLORIDE
     Dosage: GASTRIC; EXTENDED RELEASE.

REACTIONS (2)
  - Hordeolum [Unknown]
  - Eye irritation [Unknown]

NARRATIVE: CASE EVENT DATE: 20240201
